FAERS Safety Report 12666284 (Version 2)
Quarter: 2016Q3

REPORT INFORMATION
  Report Type: Spontaneous
  Country: US (occurrence: US)
  Receive Date: 20160818
  Receipt Date: 20160914
  Transmission Date: 20161109
  Serious: No
  Sender: FDA-Public Use
  Company Number: US-JAZZ-2016-US-005758

PATIENT
  Sex: Female

DRUGS (35)
  1. PRAMIPEXOLE. [Suspect]
     Active Substance: PRAMIPEXOLE
     Indication: PRODUCT USED FOR UNKNOWN INDICATION
  2. ENDOCET [Concomitant]
     Active Substance: ACETAMINOPHEN\OXYCODONE HYDROCHLORIDE
  3. NASONEX [Concomitant]
     Active Substance: MOMETASONE FUROATE
  4. TOPIRAMATE. [Concomitant]
     Active Substance: TOPIRAMATE
  5. ISOSORBIDE MN [Concomitant]
     Active Substance: ISOSORBIDE MONONITRATE
  6. NIFEDIPINE. [Concomitant]
     Active Substance: NIFEDIPINE
  7. OPANA [Concomitant]
     Active Substance: OXYMORPHONE HYDROCHLORIDE
  8. FLUTICASONE [Concomitant]
     Active Substance: FLUTICASONE\FLUTICASONE PROPIONATE
  9. GABAPENTIN. [Concomitant]
     Active Substance: GABAPENTIN
  10. VITAMIN B12 [Concomitant]
     Active Substance: CYANOCOBALAMIN
  11. PROVIGIL [Concomitant]
     Active Substance: MODAFINIL
  12. BUTALBITAL, ACETAMINOPHEN, AND CAFFEINE [Concomitant]
     Active Substance: ACETAMINOPHEN\BUTALBITAL\CAFFEINE
  13. MARINOL [Concomitant]
     Active Substance: DRONABINOL
  14. CESAMET [Concomitant]
     Active Substance: NABILONE
  15. COENZYME Q10 [Concomitant]
     Active Substance: UBIDECARENONE
  16. ARMOUR THYROID [Concomitant]
     Active Substance: THYROID, PORCINE
  17. XYREM [Suspect]
     Active Substance: SODIUM OXYBATE
     Dosage: 4.5 G, BID
     Route: 048
     Dates: start: 201210
  18. LEVOTHYROXINE. [Concomitant]
     Active Substance: LEVOTHYROXINE
  19. XYREM [Suspect]
     Active Substance: SODIUM OXYBATE
     Indication: NARCOLEPSY
     Dosage: 3 G, BID
     Route: 048
     Dates: start: 201208, end: 201209
  20. NTG [Concomitant]
     Active Substance: NITROGLYCERIN
  21. ASPIRIN. [Concomitant]
     Active Substance: ASPIRIN
  22. TIZANIDINE. [Concomitant]
     Active Substance: TIZANIDINE
  23. NIACIN. [Concomitant]
     Active Substance: NIACIN
  24. PENNSAID [Concomitant]
     Active Substance: DICLOFENAC SODIUM
  25. VENLAFAXINE [Concomitant]
     Active Substance: VENLAFAXINE HYDROCHLORIDE
  26. ZOLPIDEM [Concomitant]
     Active Substance: ZOLPIDEM\ZOLPIDEM TARTRATE
  27. METFORMIN [Concomitant]
     Active Substance: METFORMIN HYDROCHLORIDE
  28. MORPHINE SULF [Concomitant]
     Active Substance: MORPHINE SULFATE
  29. XYREM [Suspect]
     Active Substance: SODIUM OXYBATE
     Dosage: 3.75 G, BID
     Route: 048
     Dates: start: 201209, end: 201210
  30. CLONAZEPAM. [Concomitant]
     Active Substance: CLONAZEPAM
  31. FLEXERIL [Concomitant]
     Active Substance: CYCLOBENZAPRINE HYDROCHLORIDE
  32. DICLOFENAC POTASSIUM. [Concomitant]
     Active Substance: DICLOFENAC POTASSIUM
  33. NITROLINGUAL [Concomitant]
     Active Substance: NITROGLYCERIN
  34. LEXAPRO [Concomitant]
     Active Substance: ESCITALOPRAM OXALATE
  35. NALTREXONE HCL [Concomitant]
     Active Substance: NALTREXONE HYDROCHLORIDE

REACTIONS (4)
  - Therapeutic response unexpected [Unknown]
  - Pre-existing condition improved [Unknown]
  - Chronic fatigue syndrome [Unknown]
  - Nervousness [Unknown]
